FAERS Safety Report 5764571-5 (Version None)
Quarter: 2008Q2

REPORT INFORMATION
  Report Type: 
  Country: None (occurrence: None)
  Receive Date: 20080610
  Receipt Date: 20080603
  Transmission Date: 20081010
  Serious: Yes (Hospitalization, Disabling)
  Sender: FDA-Public Use
  Company Number: ES-PFIZER INC-2008046676

PATIENT
  Age: 54 Year

DRUGS (1)
  1. GENOTROPIN [Suspect]
     Dosage: DAILY DOSE:.5MG-FREQ:DAILY
     Route: 058
     Dates: start: 19980617, end: 20050201

REACTIONS (1)
  - TUMOUR FLARE [None]
